FAERS Safety Report 7693838-9 (Version None)
Quarter: 2011Q3

REPORT INFORMATION
  Report Type: 
  Country: None (occurrence: None)
  Receive Date: 20110819
  Receipt Date: 20110811
  Transmission Date: 20111222
  Serious: Yes (Other)
  Sender: FDA-Public Use
  Company Number: US-JNJFOC-20110806606

PATIENT
  Age: 74 Year
  Sex: Female
  Weight: 73.48 kg

DRUGS (9)
  1. ATENOLOL [Concomitant]
     Indication: HYPERTENSION
     Route: 065
     Dates: start: 20010101
  2. LISINOPRIL [Concomitant]
     Indication: HYPERTENSION
     Route: 065
     Dates: start: 20010101
  3. POTASSIUM [Concomitant]
     Indication: FLUID RETENTION
     Route: 065
     Dates: start: 20010101
  4. ISORBID [Concomitant]
     Indication: CARDIAC DISORDER
     Route: 065
     Dates: start: 20110101
  5. IMODIUM MULTI-SYMPTOM RELIEF [Suspect]
     Indication: DIARRHOEA
     Dosage: 1 DOSE, TWICE
     Route: 048
     Dates: start: 20110808
  6. HYDROCHLOROTHIAZIDE [Concomitant]
     Indication: FLUID RETENTION
     Route: 065
     Dates: start: 20010101
  7. IMODIUM MULTI-SYMPTOM RELIEF [Suspect]
     Route: 048
  8. POTASSIUM [Concomitant]
     Indication: BLOOD POTASSIUM DECREASED
     Route: 065
     Dates: start: 20010101
  9. PRAVASTATIN [Concomitant]
     Indication: BLOOD CHOLESTEROL INCREASED
     Route: 065
     Dates: start: 20010101

REACTIONS (2)
  - FAECES DISCOLOURED [None]
  - GASTROINTESTINAL ULCER HAEMORRHAGE [None]
